FAERS Safety Report 6277662-X (Version None)
Quarter: 2009Q3

REPORT INFORMATION
  Report Type: 
  Country: None (occurrence: None)
  Receive Date: 20090720
  Receipt Date: 20090709
  Transmission Date: 20100115
  Serious: Yes (Hospitalization, Other)
  Sender: FDA-Public Use
  Company Number: ADR6972009

PATIENT
  Age: 67 Year
  Sex: Female

DRUGS (2)
  1. SIMVASTATIN [Suspect]
     Indication: HYPERCHOLESTEROLAEMIA
     Dosage: ORAL
     Route: 048
     Dates: start: 20080506, end: 20080527
  2. APROVEL (LEBERSARTAN) [Concomitant]

REACTIONS (9)
  - ABDOMINAL PAIN UPPER [None]
  - C-REACTIVE PROTEIN INCREASED [None]
  - DIARRHOEA [None]
  - LIP OEDEMA [None]
  - LIPOEDEMA [None]
  - MALAISE [None]
  - NAUSEA [None]
  - PYREXIA [None]
  - RASH PRURITIC [None]
